FAERS Safety Report 9704804 (Version 2)
Quarter: 2013Q4

REPORT INFORMATION
  Report Type: Spontaneous
  Country: AU (occurrence: AU)
  Receive Date: 20131122
  Receipt Date: 20131122
  Transmission Date: 20140711
  Serious: Yes (Other)
  Sender: FDA-Public Use
  Company Number: AU-ACTAVIS-2013-18543

PATIENT
  Sex: Male
  Weight: 78 kg

DRUGS (6)
  1. ANDRODERM [Suspect]
     Indication: BLOOD TESTOSTERONE DECREASED
     Dosage: 5 MG, BID
     Route: 062
     Dates: start: 20060304
  2. ANDRODERM [Suspect]
     Dosage: 5 MG, BID
     Route: 062
  3. TAMBOCOR [Concomitant]
     Indication: PRODUCT USED FOR UNKNOWN INDICATION
     Dosage: UNK
     Route: 065
  4. ATIVAN [Concomitant]
     Indication: PRODUCT USED FOR UNKNOWN INDICATION
     Dosage: UNK
     Route: 065
  5. NEXIUM                             /01479302/ [Concomitant]
     Indication: PRODUCT USED FOR UNKNOWN INDICATION
     Dosage: UNK
     Route: 065
  6. PANADOL OSTEO [Concomitant]
     Indication: PRODUCT USED FOR UNKNOWN INDICATION
     Dosage: UNK
     Route: 065

REACTIONS (5)
  - Asthenia [Unknown]
  - Feeling abnormal [Not Recovered/Not Resolved]
  - Blood testosterone decreased [Recovered/Resolved]
  - Drug ineffective [Unknown]
  - Off label use [Not Recovered/Not Resolved]
